FAERS Safety Report 18056334 (Version 1)
Quarter: 2020Q3

REPORT INFORMATION
  Report Type: Spontaneous
  Country: US (occurrence: US)
  Receive Date: 20200722
  Receipt Date: 20200722
  Transmission Date: 20201103
  Serious: No
  Sender: FDA-Public Use
  Company Number: US-VIFOR (INTERNATIONAL) INC.-VIT-2020-06882

PATIENT
  Age: 65 Year
  Sex: Male

DRUGS (1)
  1. VELTASSA [Suspect]
     Active Substance: PATIROMER
     Indication: HYPERKALAEMIA
     Dosage: 1 PACKET
     Route: 048
     Dates: start: 20190612

REACTIONS (1)
  - Incisional hernia [Not Recovered/Not Resolved]

NARRATIVE: CASE EVENT DATE: 202005
